FAERS Safety Report 4344740-1 (Version None)
Quarter: 2004Q2

REPORT INFORMATION
  Report Type: 
  Country: None (occurrence: None)
  Receive Date: 20040420
  Receipt Date: 20040407
  Transmission Date: 20050107
  Serious: Yes (Hospitalization)
  Sender: FDA-Public Use
  Company Number: 2004208324IT

PATIENT
  Age: 67 Year
  Sex: Female

DRUGS (3)
  1. CELEBREX [Suspect]
     Indication: ARTHRALGIA
     Dosage: 200 MG, QD, ORAL
     Route: 048
     Dates: start: 20020101
  2. CALCIUM CARBONATE [Concomitant]
  3. CALCIUM LACTOGLUCONATE (CALCIUM LACTOGLUCONATE) [Concomitant]

REACTIONS (3)
  - ERYTHEMA [None]
  - GENERALISED OEDEMA [None]
  - LOSS OF CONSCIOUSNESS [None]
